FAERS Safety Report 25348243 (Version 1)
Quarter: 2025Q2

REPORT INFORMATION
  Report Type: Spontaneous
  Country: CN (occurrence: CN)
  Receive Date: 20250522
  Receipt Date: 20250522
  Transmission Date: 20250717
  Serious: Yes (Hospitalization)
  Sender: VIIV
  Company Number: CN-VIIV HEALTHCARE-CN2025APC062340

PATIENT

DRUGS (1)
  1. DOVATO [Suspect]
     Active Substance: DOLUTEGRAVIR SODIUM\LAMIVUDINE
     Indication: Acquired immunodeficiency syndrome
     Dosage: 1 DF, QD
     Route: 048
     Dates: start: 20250427, end: 20250516

REACTIONS (5)
  - Herpes virus infection [Recovering/Resolving]
  - Rash [Recovering/Resolving]
  - Ulcer [Recovering/Resolving]
  - Drug hypersensitivity [Recovering/Resolving]
  - Pruritus [Recovering/Resolving]

NARRATIVE: CASE EVENT DATE: 20250512
